FAERS Safety Report 14201784 (Version 3)
Quarter: 2017Q4

REPORT INFORMATION
  Report Type: Spontaneous
  Country: US (occurrence: US)
  Receive Date: 20171117
  Receipt Date: 20171229
  Transmission Date: 20180321
  Serious: Yes (Other)
  Sender: FDA-Public Use
  Company Number: US-OMEROS CORPORATION-2017OME00020

PATIENT
  Age: 78 Year
  Sex: Female

DRUGS (17)
  1. OMIDRIA [Suspect]
     Active Substance: KETOROLAC\PHENYLEPHRINE
     Indication: CATARACT OPERATION
     Dosage: UNK UNK, ONCE, RIGHT EYE
     Route: 031
     Dates: start: 20170926, end: 20170926
  2. DUOVISC [Concomitant]
     Active Substance: CHONDROITIN SULFATE A\HYALURONATE SODIUM
     Dosage: UNK, ONCE
     Dates: start: 20170926, end: 20170926
  3. ATORVASTATIN [Concomitant]
     Active Substance: ATORVASTATIN
     Dosage: UNK
     Route: 048
  4. ELIQUIS [Concomitant]
     Active Substance: APIXABAN
     Route: 048
  5. OFLOXACIN. [Concomitant]
     Active Substance: OFLOXACIN
     Dosage: 1 DROP, 4X/DAY, BOTH EYES
     Dates: start: 20170923
  6. BETADINE [Concomitant]
     Active Substance: POVIDONE-IODINE
     Dosage: UNK UNK, ONCE
     Route: 061
     Dates: start: 20170926, end: 20170926
  7. PRESERVATIVE FREE INTRAOCULAR LIDOCAINE [Concomitant]
     Dosage: 4 ML, ONCE
     Route: 031
     Dates: start: 20170926, end: 20170926
  8. VISCOAT [Concomitant]
     Dosage: UNK
     Route: 031
     Dates: start: 20170926, end: 20170926
  9. OMIDRIA [Suspect]
     Active Substance: KETOROLAC\PHENYLEPHRINE
     Indication: INTRAOCULAR LENS IMPLANT
  10. MULTIVITAMIN [Concomitant]
     Active Substance: VITAMINS
     Dosage: 1 CAPSULES, 1X/DAY
     Route: 048
  11. VISION HEALTH [Concomitant]
     Dosage: 1 CAPSULES, 2X/DAY
     Route: 048
  12. VITAMIN D3 [Concomitant]
     Active Substance: CHOLECALCIFEROL
     Dosage: 2000 U, 1X/DAY
     Route: 048
  13. STERILE SALINE [Concomitant]
     Dosage: UNK, ONCE
     Route: 061
     Dates: start: 20170926, end: 20170926
  14. FLECAINIDE [Concomitant]
     Active Substance: FLECAINIDE
     Route: 048
  15. ALCON BSS [Concomitant]
     Dosage: UNK, ONCE, RIGHT EYE
     Dates: start: 20170926, end: 20170926
  16. DILTIAZEM CD [Concomitant]
     Active Substance: DILTIAZEM
     Route: 048
  17. KETOROLAC [Concomitant]
     Active Substance: KETOROLAC\KETOROLAC TROMETHAMINE
     Dosage: 1 DROP, 4X/DAY, RIGHT EYE
     Dates: start: 20170923

REACTIONS (3)
  - Fibrin [Recovered/Resolved]
  - Anterior chamber inflammation [Recovered/Resolved]
  - Toxic anterior segment syndrome [Unknown]

NARRATIVE: CASE EVENT DATE: 2017
